FAERS Safety Report 19236563 (Version 1)
Quarter: 2021Q2

REPORT INFORMATION
  Report Type: Spontaneous
  Country: US (occurrence: US)
  Receive Date: 20210507
  Receipt Date: 20210507
  Transmission Date: 20210717
  Serious: No
  Sender: FDA-Public Use
  Company Number: None

PATIENT
  Age: 77 Year
  Sex: Male
  Weight: 76.2 kg

DRUGS (1)
  1. BAMLANIVIMAB/ETESEVIMAB [Suspect]
     Active Substance: BAMLANIVIMAB\ETESEVIMAB
     Indication: COVID-19
     Dates: start: 20210430

REACTIONS (3)
  - Tachycardia [None]
  - Pyrexia [None]
  - COVID-19 [None]

NARRATIVE: CASE EVENT DATE: 20210430
